FAERS Safety Report 19375700 (Version 1)
Quarter: 2021Q2

REPORT INFORMATION
  Report Type: Spontaneous
  Country: US (occurrence: US)
  Receive Date: 20210605
  Receipt Date: 20210605
  Transmission Date: 20210717
  Serious: No
  Sender: FDA-Public Use
  Company Number: US-DRREDDYS-USA/USA/21/0136247

PATIENT
  Age: 16 Year
  Sex: Male

DRUGS (2)
  1. ZENATANE [Suspect]
     Active Substance: ISOTRETINOIN
     Dosage: RMA ISSUE DATE: 16/OCTOBER/2020 12:00:00 AM, 19/NOVEMBER/2020 12:00:00 AM, 21/DECEMBER/2020 12:00:00
  2. ZENATANE [Suspect]
     Active Substance: ISOTRETINOIN
     Indication: PRODUCT USED FOR UNKNOWN INDICATION
     Dosage: RMA ISSUE DATE: 25/MARCH/2021 12:00:00 AM, 29/ APRIL/2021 12:00:00 AM

REACTIONS (1)
  - Rash [Unknown]
